FAERS Safety Report 9445444 (Version 1)
Quarter: 2013Q3

REPORT INFORMATION
  Report Type: Spontaneous
  Country: US (occurrence: None)
  Receive Date: 20130724
  Receipt Date: 20130724
  Transmission Date: 20140515
  Serious: Yes (Death, Hospitalization)
  Sender: FDA-Public Use
  Company Number: 2013PROUSA02974

PATIENT
  Age: 63 Year
  Sex: Male
  Weight: 62.6 kg

DRUGS (1)
  1. PROVENGE (SIPULEUCEL-T) SUSPENSION, 250ML [Suspect]
     Indication: PROSTATE CANCER METASTATIC
     Dosage: SINGLE
     Route: 042
     Dates: start: 20130315, end: 20130315

REACTIONS (1)
  - Hospitalisation [None]
